FAERS Safety Report 25051632 (Version 2)
Quarter: 2025Q2

REPORT INFORMATION
  Report Type: Report from Study
  Country: BR (occurrence: BR)
  Receive Date: 20250307
  Receipt Date: 20250417
  Transmission Date: 20250716
  Serious: Yes (Hospitalization, Other)
  Sender: BIOGEN
  Company Number: BR-BIOGEN-2025BI01303160

PATIENT
  Sex: Female
  Weight: 66 kg

DRUGS (5)
  1. TYSABRI [Suspect]
     Active Substance: NATALIZUMAB
     Indication: Multiple sclerosis
     Route: 050
     Dates: start: 202304, end: 20240218
  2. LAMOTRIGINE [Concomitant]
     Active Substance: LAMOTRIGINE
     Indication: Epilepsy
     Route: 050
     Dates: start: 2015
  3. CLOBAZAM [Concomitant]
     Active Substance: CLOBAZAM
     Indication: Epilepsy
     Route: 050
  4. GADERNAL [Concomitant]
     Indication: Epilepsy
     Route: 050
  5. METHYLPHENIDATE [Concomitant]
     Active Substance: METHYLPHENIDATE
     Indication: Attention deficit hyperactivity disorder
     Route: 050

REACTIONS (13)
  - Dengue fever [Recovered/Resolved with Sequelae]
  - Pleural effusion [Recovered/Resolved with Sequelae]
  - Pulmonary oedema [Recovered/Resolved with Sequelae]
  - Pericardial effusion [Recovered/Resolved with Sequelae]
  - Periportal oedema [Unknown]
  - Pulmonary haemorrhage [Unknown]
  - Platelet count increased [Unknown]
  - Somnolence [Not Recovered/Not Resolved]
  - General physical health deterioration [Unknown]
  - Decreased immune responsiveness [Unknown]
  - Oxygen saturation decreased [Unknown]
  - White matter lesion [Unknown]
  - Periorbital oedema [Unknown]

NARRATIVE: CASE EVENT DATE: 20240101
